FAERS Safety Report 4522977-6 (Version None)
Quarter: 2004Q4

REPORT INFORMATION
  Report Type: 
  Country: None (occurrence: None)
  Receive Date: 20041210
  Receipt Date: 20041130
  Transmission Date: 20050328
  Serious: Yes (Death)
  Sender: FDA-Public Use
  Company Number: APCDSS2002001469

PATIENT
  Sex: Female
  Weight: 30 kg

DRUGS (8)
  1. REMICADE [Suspect]
     Route: 041
     Dates: start: 20020812
  2. REMICADE [Suspect]
     Indication: CROHN'S DISEASE
     Route: 041
     Dates: start: 20020812
  3. LOXOPROFEN SODIUM [Concomitant]
     Route: 049
  4. PREDNISOLONE [Concomitant]
     Route: 049
  5. METHYLPREDNISOLONE SODIUM SUCCINATE [Concomitant]
     Route: 041
  6. RACOL [Concomitant]
     Route: 049
  7. ROCEPHIN [Concomitant]
     Route: 041
  8. SULFASALAZINE [Concomitant]
     Route: 049

REACTIONS (4)
  - HOARSENESS [None]
  - INTESTINAL PERFORATION [None]
  - PERITONITIS [None]
  - PYREXIA [None]
